FAERS Safety Report 13492099 (Version 2)
Quarter: 2017Q3

REPORT INFORMATION
  Report Type: Spontaneous
  Country: US (occurrence: US)
  Receive Date: 20170427
  Receipt Date: 20170816
  Transmission Date: 20171127
  Serious: No
  Sender: FDA-Public Use
  Company Number: US-009507513-1704USA006517

PATIENT
  Sex: Female

DRUGS (1)
  1. INTRON A [Suspect]
     Active Substance: INTERFERON ALFA-2B
     Indication: MALIGNANT MELANOMA
     Dosage: STRENGTH: 18 MILION IU/ 3 ML, DOSE: 750 000 UNITS (0.04 ML)(12.5 UNITS IN SYRINGE), DAILY (QD)
     Route: 058
     Dates: start: 20170419

REACTIONS (4)
  - Adverse event [Unknown]
  - Adverse event [Not Recovered/Not Resolved]
  - Hair disorder [Unknown]
  - Nausea [Unknown]

NARRATIVE: CASE EVENT DATE: 2017
